FAERS Safety Report 5474396-6 (Version None)
Quarter: 2007Q3

REPORT INFORMATION
  Report Type: 
  Country: None (occurrence: None)
  Receive Date: 20070831
  Receipt Date: 20070413
  Transmission Date: 20080115
  Serious: No
  Sender: FDA-Public Use
  Company Number: 239923

PATIENT
  Age: 89 Year
  Sex: Female

DRUGS (3)
  1. LUCENTIS [Suspect]
     Indication: DRUG USE FOR UNKNOWN INDICATION
     Dates: start: 20070407
  2. LIPITOR [Concomitant]
  3. VERAPAMIL(VERAPAMIL HYDROCHLORIDE) [Concomitant]

REACTIONS (2)
  - HEADACHE [None]
  - VISION BLURRED [None]
